FAERS Safety Report 5341795-2 (Version None)
Quarter: 2007Q2

REPORT INFORMATION
  Report Type: 
  Country: None (occurrence: None)
  Receive Date: 20070601
  Receipt Date: 20070523
  Transmission Date: 20071010
  Serious: Yes (Hospitalization)
  Sender: FDA-Public Use
  Company Number: US-JNJFOC-20070506254

PATIENT
  Sex: Female
  Weight: 75.75 kg

DRUGS (28)
  1. DURAGESIC-100 [Suspect]
     Indication: PAIN
     Route: 062
  2. OXYCONTIN [Suspect]
     Indication: DRUG USE FOR UNKNOWN INDICATION
     Route: 048
  3. DILAUDID [Suspect]
     Indication: PAIN
     Route: 048
  4. FENTANYL CITRATE [Suspect]
     Indication: BREAKTHROUGH PAIN
     Route: 065
  5. NITROQUICK [Concomitant]
     Route: 065
  6. LEXAPRO [Concomitant]
     Indication: ANXIETY
     Route: 065
  7. ZOCOR [Concomitant]
     Route: 065
  8. DIOVAN [Concomitant]
     Route: 065
  9. PROVIGIL [Concomitant]
     Indication: FATIGUE
     Route: 065
  10. REGLAN [Concomitant]
     Route: 065
  11. ZANAFLEX [Concomitant]
     Indication: MUSCLE SPASMS
     Route: 065
  12. TEMAZEPAM [Concomitant]
     Route: 065
  13. LASIX [Concomitant]
     Route: 065
  14. VISTARIL [Concomitant]
     Indication: NAUSEA
     Route: 065
  15. ECOTRIN [Concomitant]
     Route: 065
  16. ESTRATEST [Concomitant]
     Route: 065
  17. ADDERALL XR 10 [Concomitant]
     Route: 065
  18. DESYREL [Concomitant]
     Route: 065
  19. ZELNORM [Concomitant]
     Route: 065
  20. NEURONTIN [Concomitant]
     Route: 065
  21. MAXALT [Concomitant]
     Route: 065
  22. PHENERGAN HCL [Concomitant]
     Route: 065
  23. AXERT [Concomitant]
     Route: 065
  24. RELPAX [Concomitant]
     Route: 065
  25. CHROMIUM [Concomitant]
     Route: 065
  26. AMOXICILLIN + CLAVULANATE POTASSIUM [Concomitant]
     Route: 065
  27. NORTRIPTYLINE HCL [Concomitant]
     Indication: SLEEP DISORDER
     Route: 065
  28. CHANTIX [Concomitant]
     Route: 065

REACTIONS (5)
  - MULTIPLE DRUG OVERDOSE [None]
  - PNEUMONIA [None]
  - RESPIRATORY DISTRESS [None]
  - SEDATION [None]
  - TOXIC INDUCED ENCEPHALOPATHY [None]
